FAERS Safety Report 25304745 (Version 1)
Quarter: 2025Q2

REPORT INFORMATION
  Report Type: Spontaneous
  Country: QA (occurrence: QA)
  Receive Date: 20250513
  Receipt Date: 20250513
  Transmission Date: 20250717
  Serious: Yes (Hospitalization, Other)
  Sender: AZURITY PHARMACEUTICALS
  Company Number: QA-AZURITY PHARMACEUTICALS, INC.-AZR202504-001321

PATIENT
  Age: 25 Year
  Sex: Male
  Weight: 55 kg

DRUGS (7)
  1. MYCOPHENOLATE MOFETIL [Interacting]
     Active Substance: MYCOPHENOLATE MOFETIL
     Indication: Immunosuppression
     Route: 065
  2. MYCOPHENOLATE MOFETIL [Interacting]
     Active Substance: MYCOPHENOLATE MOFETIL
     Route: 065
  3. TACROLIMUS [Interacting]
     Active Substance: TACROLIMUS
     Indication: Immunosuppression
     Route: 065
  4. TACROLIMUS [Interacting]
     Active Substance: TACROLIMUS
     Route: 065
  5. TACROLIMUS [Interacting]
     Active Substance: TACROLIMUS
     Route: 065
  6. BASILIXIMAB [Suspect]
     Active Substance: BASILIXIMAB
     Indication: Immunosuppression
     Route: 065
  7. PREDNISONE [Suspect]
     Active Substance: PREDNISONE
     Indication: Immunosuppression
     Route: 065

REACTIONS (3)
  - Drug interaction [Unknown]
  - Pancreatitis acute [Recovered/Resolved]
  - Overdose [Unknown]
